FAERS Safety Report 6891737-3 (Version None)
Quarter: 2010Q3

REPORT INFORMATION
  Report Type: 
  Country: None (occurrence: None)
  Receive Date: 20100731
  Receipt Date: 20071114
  Transmission Date: 20110219
  Serious: No
  Sender: FDA-Public Use
  Company Number: US-PFIZER INC-2007065070

PATIENT
  Sex: Male
  Weight: 73.6 kg

DRUGS (7)
  1. NORVASC [Suspect]
     Indication: HYPERTENSION
     Dates: start: 20070221, end: 20070415
  2. AVALIDE [Concomitant]
  3. BISOPROLOL [Concomitant]
  4. PLAVIX [Concomitant]
  5. CELEBREX [Concomitant]
     Indication: PAIN
  6. PROSCAR [Concomitant]
     Indication: BENIGN PROSTATIC HYPERPLASIA
  7. SULAR [Concomitant]

REACTIONS (5)
  - BLOOD PRESSURE INADEQUATELY CONTROLLED [None]
  - GINGIVAL BLEEDING [None]
  - NECK PAIN [None]
  - PRURITUS [None]
  - TOOTHACHE [None]
